FAERS Safety Report 4437699-X (Version None)
Quarter: 2004Q3

REPORT INFORMATION
  Report Type: 
  Country: None (occurrence: None)
  Receive Date: 20040831
  Receipt Date: 20030929
  Transmission Date: 20050211
  Serious: No
  Sender: FDA-Public Use
  Company Number: US-GLAXOSMITHKLINE-A0427888A

PATIENT
  Age: 62 Year
  Sex: Male
  Weight: 82.3 kg

DRUGS (9)
  1. ACYCLOVIR [Suspect]
     Dosage: 800MG FIVE TIMES PER DAY
     Route: 048
     Dates: start: 20030724
  2. AVANDIA [Suspect]
     Indication: ILL-DEFINED DISORDER
     Dosage: 8MG PER DAY
     Route: 065
     Dates: start: 20030101
  3. IBUPROFEN [Concomitant]
     Route: 065
  4. GLUCOPHAGE XR [Concomitant]
     Dosage: 500MG TWICE PER DAY
     Route: 065
  5. ASPIRIN [Concomitant]
     Dosage: 81MG PER DAY
     Route: 065
  6. UNIVASC [Concomitant]
     Dosage: 15MG PER DAY
     Route: 065
  7. METAGLIP [Concomitant]
     Dosage: 2U TWICE PER DAY
     Route: 065
  8. LIPITOR [Concomitant]
     Dosage: 10MG PER DAY
     Route: 065
  9. VIAGRA [Concomitant]
     Dosage: 50MG AS REQUIRED
     Route: 048

REACTIONS (1)
  - BLOOD GLUCOSE DECREASED [None]
